FAERS Safety Report 4282531-0 (Version None)
Quarter: 2004Q1

REPORT INFORMATION
  Report Type: 
  Country: None (occurrence: None)
  Receive Date: 20040129
  Receipt Date: 20040116
  Transmission Date: 20041129
  Serious: Yes (Death, Hospitalization, Other)
  Sender: FDA-Public Use
  Company Number: NSADSS2003023540

PATIENT
  Age: 72 Year
  Sex: Male

DRUGS (8)
  1. REMICADE [Suspect]
     Indication: RHEUMATOID ARTHRITIS
     Dosage: SEE IMAGE
     Route: 041
     Dates: end: 20020401
  2. REMICADE [Suspect]
     Indication: RHEUMATOID ARTHRITIS
     Dosage: SEE IMAGE
     Route: 041
     Dates: start: 20020102
  3. IRON (IRON) [Concomitant]
  4. VITAMIN C (ASCORBIC ACID) [Concomitant]
  5. PREDNISONE [Concomitant]
  6. HYDROCODONE (HYDROCODONE) [Concomitant]
  7. MULTIVITAMIN [Concomitant]
  8. ASPIRIN [Concomitant]

REACTIONS (2)
  - HAEMORRHAGE [None]
  - SKIN INFECTION [None]
